FAERS Safety Report 4883356-5 (Version None)
Quarter: 2006Q1

REPORT INFORMATION
  Report Type: 
  Country: None (occurrence: None)
  Receive Date: 20060118
  Receipt Date: 20060111
  Transmission Date: 20060701
  Serious: Yes (Hospitalization)
  Sender: FDA-Public Use
  Company Number: CA-JNJFOC-20060102746

PATIENT
  Age: 15 Year
  Sex: Female

DRUGS (1)
  1. ORTHO EVRA [Suspect]
     Route: 062

REACTIONS (2)
  - OFF LABEL USE [None]
  - VAGINAL HAEMORRHAGE [None]
